FAERS Safety Report 9916017 (Version 1)
Quarter: 2014Q1

REPORT INFORMATION
  Report Type: Spontaneous
  Country: US (occurrence: None)
  Receive Date: 20140219
  Receipt Date: 20140219
  Transmission Date: 20141002
  Serious: Yes (Hospitalization)
  Sender: FDA-Public Use
  Company Number: FK201400409

PATIENT
  Age: 3 Year
  Sex: Female

DRUGS (3)
  1. METHYLPREDNISONE [Suspect]
     Indication: IMMUNE THROMBOCYTOPENIC PURPURA
     Dosage: 0.5 MG/KG, 8 MG (0.5 MG/KG), UNKNOWN
  2. DEXAMETHASONE [Suspect]
     Indication: STRIDOR
     Dosage: UNKNOWN, FOUR DOSES, INTRAVENOUS (NOT OTHERWISE SPECIFIED)
     Route: 042
  3. IMMUNE GLOBULIN [Suspect]
     Indication: IMMUNE THROMBOCYTOPENIC PURPURA
     Dosage: UNKNOWN, 1G/KG INFUSED OVER 6 HOURS, INTRAVENOUS (NOT OTHERWISE SPECIFIED)
     Route: 042

REACTIONS (2)
  - Cerebral infarction [None]
  - Convulsion [None]
